FAERS Safety Report 16136731 (Version 2)
Quarter: 2019Q2

REPORT INFORMATION
  Report Type: Report from Study
  Country: US (occurrence: US)
  Receive Date: 20190329
  Receipt Date: 20190516
  Transmission Date: 20190711
  Serious: Yes (Other)
  Sender: FDA-Public Use
  Company Number: PHEH2019US013121

PATIENT
  Sex: Female

DRUGS (1)
  1. ENTRESTO [Suspect]
     Active Substance: SACUBITRIL\VALSARTAN
     Indication: PRODUCT USED FOR UNKNOWN INDICATION
     Route: 048

REACTIONS (8)
  - Chest pain [Unknown]
  - Dysphonia [Unknown]
  - Thyroid cancer [Unknown]
  - Lung disorder [Unknown]
  - Panic attack [Unknown]
  - Oral pain [Unknown]
  - Laryngeal cancer [Unknown]
  - Cardiac disorder [Unknown]
